FAERS Safety Report 5599968-X (Version None)
Quarter: 2008Q1

REPORT INFORMATION
  Report Type: 
  Country: None (occurrence: None)
  Receive Date: 20080123
  Receipt Date: 20080117
  Transmission Date: 20080703
  Serious: Yes (Disabling)
  Sender: FDA-Public Use
  Company Number: JP-ASTRAZENECA-2007AP07494

PATIENT
  Age: 84 Day
  Sex: Male
  Weight: 9 kg

DRUGS (9)
  1. PULMICORT RESPULES [Suspect]
     Indication: ASTHMA
     Route: 055
     Dates: start: 20070709, end: 20070721
  2. PULMICORT RESPULES [Suspect]
     Route: 055
     Dates: start: 20070722, end: 20070917
  3. MEPTIN [Concomitant]
     Indication: ASTHMA
     Route: 055
     Dates: start: 20070709, end: 20070721
  4. INTAL [Concomitant]
     Indication: ASTHMA
     Route: 055
     Dates: start: 20070709, end: 20070721
  5. INTAL [Concomitant]
     Route: 055
     Dates: start: 20070722, end: 20070917
  6. ONON [Concomitant]
     Indication: ASTHMA
     Route: 048
     Dates: start: 20070709, end: 20070917
  7. SOLU-CORTEF [Concomitant]
     Indication: ASTHMA
     Route: 042
     Dates: start: 20070709, end: 20070917
  8. SOLU-MEDROL [Concomitant]
     Indication: ASTHMA
     Route: 042
     Dates: start: 20070710, end: 20070711
  9. SOLU-MEDROL [Concomitant]
     Route: 042
     Dates: start: 20070712, end: 20070717

REACTIONS (3)
  - ACUTE RESPIRATORY FAILURE [None]
  - CHEILITIS [None]
  - ORAL CANDIDIASIS [None]
